FAERS Safety Report 4705730-X (Version None)
Quarter: 2005Q2

REPORT INFORMATION
  Report Type: 
  Country: None (occurrence: None)
  Receive Date: 20050629
  Receipt Date: 20050617
  Transmission Date: 20051028
  Serious: Yes (Hospitalization)
  Sender: FDA-Public Use
  Company Number: 2005-BP-10646RO

PATIENT
  Age: 44 Year
  Sex: Female

DRUGS (1)
  1. DICLOFENAC (DICLOFENAC) [Suspect]
     Indication: BACK PAIN

REACTIONS (9)
  - ANGIOIMMUNOBLASTIC T-CELL LYMPHOMA [None]
  - AUTOLOGOUS BONE MARROW TRANSPLANTATION THERAPY [None]
  - BLOOD CREATINE INCREASED [None]
  - DRUG RASH WITH EOSINOPHILIA AND SYSTEMIC SYMPTOMS [None]
  - GAMMOPATHY [None]
  - HEPATOMEGALY [None]
  - LUNG INFILTRATION [None]
  - NON-HODGKIN'S LYMPHOMA [None]
  - RESPIRATORY DISTRESS [None]
